FAERS Safety Report 18841552 (Version 8)
Quarter: 2022Q1

REPORT INFORMATION
  Report Type: Spontaneous
  Country: BG (occurrence: BG)
  Receive Date: 20210204
  Receipt Date: 20220122
  Transmission Date: 20220423
  Serious: Yes (Death, Other)
  Sender: FDA-Public Use
  Company Number: BG-ROCHE-2755541

PATIENT
  Age: 70 Year
  Sex: Male
  Weight: 75 kg

DRUGS (25)
  1. BEVACIZUMAB [Suspect]
     Active Substance: BEVACIZUMAB
     Indication: Non-small cell lung cancer
     Dosage: 1100 MILLIGRAM
     Route: 065
     Dates: start: 20201002
  2. PACLITAXEL [Suspect]
     Active Substance: PACLITAXEL
     Indication: Non-small cell lung cancer
     Dosage: 300 MILLIGRAM
     Route: 065
     Dates: start: 20201002
  3. CARBOPLATIN [Suspect]
     Active Substance: CARBOPLATIN
     Indication: Non-small cell lung cancer
     Dosage: 480 MILLIGRAM
     Route: 065
     Dates: start: 20201002
  4. ATEZOLIZUMAB [Suspect]
     Active Substance: ATEZOLIZUMAB
     Indication: Non-small cell lung cancer
     Dosage: 1200 MILLIGRAM
     Route: 042
     Dates: start: 20200910
  5. ATEZOLIZUMAB [Suspect]
     Active Substance: ATEZOLIZUMAB
     Dosage: 1100 MILLIGRAM
     Route: 042
     Dates: start: 20201002
  6. ATEZOLIZUMAB [Suspect]
     Active Substance: ATEZOLIZUMAB
     Dosage: SUBSEQUENT DOSE RECEIVED ON 22/OCT/2020, 13/NOV/2020, 08/DEC/2020, 29/DEC/2020
     Route: 041
     Dates: start: 20201002
  7. ATEZOLIZUMAB [Suspect]
     Active Substance: ATEZOLIZUMAB
     Dosage: 1200 MILLIGRAM, Q3WK
     Route: 042
     Dates: start: 20201022
  8. ATEZOLIZUMAB [Suspect]
     Active Substance: ATEZOLIZUMAB
     Dosage: 1200 MILLIGRAM, Q3WK
     Route: 042
     Dates: start: 20201113
  9. ATEZOLIZUMAB [Suspect]
     Active Substance: ATEZOLIZUMAB
     Dosage: 1200 MILLIGRAM, Q3WK
     Route: 042
     Dates: start: 20201208
  10. ATEZOLIZUMAB [Suspect]
     Active Substance: ATEZOLIZUMAB
     Dosage: 1200 MILLIGRAM, Q3WK
     Route: 042
     Dates: start: 20201229
  11. ACETAMINOPHEN [Concomitant]
     Active Substance: ACETAMINOPHEN
     Indication: Chills
     Dosage: 0.5, QD
     Dates: start: 20201001, end: 20201001
  12. BISOPROLOL FUMARATE [Concomitant]
     Active Substance: BISOPROLOL FUMARATE
     Indication: Hypertension
     Dosage: UNK, QD
     Dates: start: 202007
  13. XARELTO [Concomitant]
     Active Substance: RIVAROXABAN
     Indication: Arrhythmia
     Dosage: 0.5 UNK, QD
     Dates: start: 20201106
  14. FLUTICASONE PROPIONATE [Concomitant]
     Active Substance: FLUTICASONE PROPIONATE
     Dosage: 0.5 DOSAGE FORM, QD
     Dates: start: 2017
  15. ANORO ELLIPTA [Concomitant]
     Active Substance: UMECLIDINIUM BROMIDE\VILANTEROL TRIFENATATE
     Dosage: UNK, QD
     Dates: start: 2017
  16. OLSART [Concomitant]
     Indication: Hypertension
     Dosage: UNK, QD
     Dates: start: 202007
  17. OXYCODONE [Concomitant]
     Active Substance: OXYCODONE
     Dosage: 0.5 UNK, QD
     Dates: start: 20201208
  18. OXYCODONE [Concomitant]
     Active Substance: OXYCODONE
     Dosage: UNK
     Dates: start: 20210302
  19. PIRACETAM [Concomitant]
     Active Substance: PIRACETAM
     Dosage: UNK UNK, QD
     Dates: start: 20210324, end: 20210329
  20. VINPOCETINE [Concomitant]
     Active Substance: VINPOCETINE
     Dosage: UNK, QD
     Dates: start: 20210324, end: 20210329
  21. MANNITOL [Concomitant]
     Active Substance: MANNITOL
     Dosage: UNK, QD
     Dates: start: 20210324, end: 20210329
  22. SODIUM CHLORIDE [Concomitant]
     Active Substance: SODIUM CHLORIDE
     Dosage: UNK, QD
     Dates: start: 20210324, end: 20210329
  23. DEXAMETHASONE [Concomitant]
     Active Substance: DEXAMETHASONE
     Dosage: UNK, QD
     Dates: start: 20210324, end: 20210329
  24. DIETARY SUPPLEMENT\HERBALS [Concomitant]
     Active Substance: DIETARY SUPPLEMENT\HERBALS
     Dosage: UNK, QD
     Dates: start: 20210519
  25. PEMETREXED [Concomitant]
     Active Substance: PEMETREXED
     Dosage: UNK

REACTIONS (5)
  - Death [Fatal]
  - Polyarthritis [Recovered/Resolved]
  - Lumbosacral radiculopathy [Not Recovered/Not Resolved]
  - Fatigue [Not Recovered/Not Resolved]
  - Weight decreased [Not Recovered/Not Resolved]

NARRATIVE: CASE EVENT DATE: 20201215
